FAERS Safety Report 4742848-X (Version None)
Quarter: 2005Q3

REPORT INFORMATION
  Report Type: 
  Country: None (occurrence: None)
  Receive Date: 20050811
  Receipt Date: 20050617
  Transmission Date: 20060218
  Serious: Yes (Hospitalization)
  Sender: FDA-Public Use
  Company Number: GB-BRISTOL-MYERS SQUIBB COMPANY-13009568

PATIENT
  Age: 66 Year
  Sex: Male
  Weight: 108 kg

DRUGS (2)
  1. ETOPOPHOS [Suspect]
     Indication: TESTICULAR NEOPLASM
     Route: 042
     Dates: start: 20050601, end: 20050603
  2. PLATINEX [Concomitant]
     Indication: TESTICULAR NEOPLASM
     Route: 042

REACTIONS (3)
  - ATRIAL FIBRILLATION [None]
  - DIZZINESS [None]
  - HEART RATE INCREASED [None]
